FAERS Safety Report 22140502 (Version 2)
Quarter: 2024Q3

REPORT INFORMATION
  Report Type: Spontaneous
  Country: FR (occurrence: FR)
  Receive Date: 20230327
  Receipt Date: 20240930
  Transmission Date: 20241016
  Serious: Yes (Hospitalization)
  Sender: AUROBINDO
  Company Number: FR-AFSSAPS-RS2023000178

PATIENT
  Age: 55 Year
  Sex: Female
  Weight: 75 kg

DRUGS (1)
  1. LEVOFLOXACIN [Suspect]
     Active Substance: LEVOFLOXACIN
     Indication: Medical device site joint infection
     Dosage: 750 MILLIGRAM, ONCE A DAY
     Route: 048
     Dates: start: 20230130, end: 20230220

REACTIONS (3)
  - Arthralgia [Not Recovered/Not Resolved]
  - Tendon rupture [Not Recovered/Not Resolved]
  - Cholestasis [Not Recovered/Not Resolved]

NARRATIVE: CASE EVENT DATE: 20230201
